FAERS Safety Report 20851120 (Version 2)
Quarter: 2022Q2

REPORT INFORMATION
  Report Type: Report from Study
  Country: CA (occurrence: CA)
  Receive Date: 20220519
  Receipt Date: 20220606
  Transmission Date: 20220721
  Serious: Yes (Other)
  Sender: FDA-Public Use
  Company Number: CA-TEVA-2022-CA-2015775

PATIENT
  Age: 63 Year
  Sex: Female

DRUGS (6)
  1. OCTREOTIDE [Suspect]
     Active Substance: OCTREOTIDE
     Indication: Neuroendocrine tumour
     Dosage: 40MG
     Route: 030
     Dates: start: 20220304
  2. OCTREOTIDE [Suspect]
     Active Substance: OCTREOTIDE
     Indication: Metastases to heart
  3. OCTREOTIDE [Suspect]
     Active Substance: OCTREOTIDE
     Indication: Metastases to lung
  4. Sando LAR [Concomitant]
     Route: 065
  5. LORAZEPAM [Concomitant]
     Active Substance: LORAZEPAM
     Route: 065
  6. LASIX [Concomitant]
     Active Substance: FUROSEMIDE
     Route: 065

REACTIONS (8)
  - Cardiac operation [Unknown]
  - Ascites [Unknown]
  - Abdominal distension [Unknown]
  - Injection site haemorrhage [Recovered/Resolved]
  - Off label use [Unknown]
  - Injection site pain [Recovered/Resolved]
  - Injection site pain [Recovered/Resolved]
  - Injection site haemorrhage [Recovered/Resolved]

NARRATIVE: CASE EVENT DATE: 20220304
